FAERS Safety Report 7700621-4 (Version None)
Quarter: 2011Q3

REPORT INFORMATION
  Report Type: 
  Country: None (occurrence: None)
  Receive Date: 20110822
  Receipt Date: 20110822
  Transmission Date: 20111222
  Serious: Yes (Hospitalization)
  Sender: FDA-Public Use
  Company Number: None

PATIENT
  Age: 25 Year
  Sex: Female
  Weight: 63.956 kg

DRUGS (1)
  1. AMBIEN [Suspect]
     Indication: TACHYPHRENIA
     Dosage: 10MG
     Route: 048

REACTIONS (4)
  - ABNORMAL BEHAVIOUR [None]
  - ROAD TRAFFIC ACCIDENT [None]
  - HALLUCINATION [None]
  - MEMORY IMPAIRMENT [None]
